FAERS Safety Report 9532683 (Version 1)
Quarter: 2013Q2

REPORT INFORMATION
  Report Type: Spontaneous
  Country: US (occurrence: None)
  Receive Date: 20130503
  Receipt Date: 20130503
  Transmission Date: 20140414
  Serious: Yes (Other)
  Sender: FDA-Public Use
  Company Number: 1000041930

PATIENT
  Age: 82 Year
  Sex: Female

DRUGS (1)
  1. DALIRESP [Suspect]
     Indication: NASOPHARYNGITIS
     Route: 048
     Dates: start: 20130116, end: 20130119

REACTIONS (5)
  - Abdominal pain [None]
  - Diarrhoea [None]
  - Back pain [None]
  - Insomnia [None]
  - Off label use [None]
